FAERS Safety Report 6421740-9 (Version None)
Quarter: 2009Q4

REPORT INFORMATION
  Report Type: 
  Country: None (occurrence: None)
  Receive Date: 20091030
  Receipt Date: 20091028
  Transmission Date: 20100525
  Serious: Yes (Death, Other)
  Sender: FDA-Public Use
  Company Number: US-ELI_LILLY_AND_COMPANY-US200906001161

PATIENT
  Sex: Female

DRUGS (11)
  1. BYETTA [Suspect]
     Dosage: UNK, UNKNOWN
     Dates: start: 20090507
  2. METFORMIN HCL [Concomitant]
     Dosage: UNK, UNKNOWN
  3. GLYBURIDE [Concomitant]
     Dosage: UNK, UNKNOWN
  4. GABAPENTIN [Concomitant]
     Dosage: UNK, UNKNOWN
  5. GLUCOSAMINE [Concomitant]
     Dosage: UNK, UNKNOWN
  6. LIPITOR [Concomitant]
     Dosage: UNK, UNKNOWN
  7. ENALAPRIL [Concomitant]
     Dosage: UNK, UNKNOWN
  8. ATENOLOL [Concomitant]
     Dosage: UNK, UNKNOWN
  9. FLUOXETINE [Concomitant]
     Dosage: UNK, UNKNOWN
  10. NEXIUM [Concomitant]
     Dosage: UNK, UNKNOWN
  11. ALPRAZOLAM [Concomitant]
     Dosage: UNK, UNKNOWN

REACTIONS (2)
  - DEATH [None]
  - UNRESPONSIVE TO STIMULI [None]
